FAERS Safety Report 7986030-1 (Version None)
Quarter: 2011Q4

REPORT INFORMATION
  Report Type: 
  Country: None (occurrence: None)
  Receive Date: 20111216
  Receipt Date: 20101231
  Transmission Date: 20120403
  Serious: No
  Sender: FDA-Public Use
  Company Number: US-BRISTOL-MYERS SQUIBB COMPANY-15468069

PATIENT
  Age: 64 Year
  Sex: Female

DRUGS (4)
  1. ABILIFY [Suspect]
     Indication: DEPRESSION
  2. ABILIFY [Suspect]
     Indication: ANXIETY
  3. ABILIFY [Suspect]
     Indication: APATHY
  4. PAXIL [Suspect]

REACTIONS (6)
  - MOOD SWINGS [None]
  - PAIN [None]
  - FEELING ABNORMAL [None]
  - AGITATION [None]
  - FRUSTRATION [None]
  - VERTIGO [None]
